FAERS Safety Report 21363114 (Version 3)
Quarter: 2023Q1

REPORT INFORMATION
  Report Type: Report from Study
  Country: US (occurrence: US)
  Receive Date: 20220922
  Receipt Date: 20230117
  Transmission Date: 20230417
  Serious: No
  Sender: FDA-Public Use
  Company Number: None

PATIENT
  Sex: Female

DRUGS (29)
  1. RINVOQ [Suspect]
     Active Substance: UPADACITINIB
     Indication: Rheumatoid arthritis
     Dosage: LAST ADMINISTRATION 2022 FIRST REGIMEN?EXTENDED RELEASE
     Route: 048
     Dates: start: 20220720
  2. RINVOQ [Suspect]
     Active Substance: UPADACITINIB
     Indication: Rheumatoid arthritis
     Dosage: FIRST ADMIN DATE IS 2022 FOR 2ND REGIMEN?EXTENDED RELEASE
     Route: 048
  3. TRIAMCINOLON CRE 0.1% [Concomitant]
     Indication: Product used for unknown indication
  4. IBUPROFEN [Concomitant]
     Active Substance: IBUPROFEN
     Indication: Product used for unknown indication
     Route: 050
  5. POT CHLORIDE CAP 10MEQ ER [Concomitant]
     Indication: Product used for unknown indication
  6. PANTOPRAZOLE [Concomitant]
     Active Substance: PANTOPRAZOLE
     Indication: Product used for unknown indication
     Route: 048
  7. HYDROXYCHLOROQUINE [Concomitant]
     Active Substance: HYDROXYCHLOROQUINE
     Indication: Product used for unknown indication
     Route: 048
  8. NAPROXEN [Concomitant]
     Active Substance: NAPROXEN
     Indication: Product used for unknown indication
     Route: 048
  9. FLUCONAZOLE TAB 150MG [Concomitant]
     Indication: Product used for unknown indication
     Route: 048
  10. ONDANSETRON [Concomitant]
     Active Substance: ONDANSETRON
     Indication: Product used for unknown indication
     Dosage: ORALLY DISINTEGRATING TABLET
  11. SOLIFENACIN TAB 5MG [Concomitant]
     Indication: Product used for unknown indication
     Route: 048
  12. FLUCONAZOLE [Concomitant]
     Active Substance: FLUCONAZOLE
     Indication: Product used for unknown indication
     Route: 048
  13. FOLIC ACID TAB 1000MCG [Concomitant]
     Indication: Product used for unknown indication
     Route: 048
  14. SOLIFENACIN SUCCINATE [Concomitant]
     Active Substance: SOLIFENACIN SUCCINATE
     Indication: Product used for unknown indication
     Route: 048
  15. NAPROXEN TAB 375MG [Concomitant]
     Indication: Product used for unknown indication
     Route: 048
  16. TOLTERODINE TARTRATE [Concomitant]
     Active Substance: TOLTERODINE TARTRATE
     Indication: Product used for unknown indication
  17. IBUPROFEN TAB 800 MG [Concomitant]
     Indication: Product used for unknown indication
  18. FOLIC ACID [Concomitant]
     Active Substance: FOLIC ACID
     Indication: Product used for unknown indication
     Route: 048
  19. CELECOXIB CAP 200MG [Concomitant]
     Indication: Product used for unknown indication
  20. POTASSIUM CHLORIDE [Concomitant]
     Active Substance: POTASSIUM CHLORIDE
     Indication: Product used for unknown indication
     Dosage: EXTENDED RELEASE
  21. TOLTERODINE [Concomitant]
     Active Substance: TOLTERODINE
     Indication: Product used for unknown indication
  22. ACETAMINOPHEN\HYDROCODONE [Concomitant]
     Active Substance: ACETAMINOPHEN\HYDROCODONE
     Indication: Product used for unknown indication
     Dosage: 7.5-3.25
     Route: 050
  23. PANTOPRAZOLE TAB 40MG [Concomitant]
     Indication: Product used for unknown indication
     Route: 048
  24. HYDROXYCHLOROQUINE [Concomitant]
     Active Substance: HYDROXYCHLOROQUINE
     Indication: Product used for unknown indication
     Route: 048
  25. ACETAMINOPHEN\HYDROCODONE [Concomitant]
     Active Substance: ACETAMINOPHEN\HYDROCODONE
     Indication: Product used for unknown indication
  26. TRIAMCINOLON [Concomitant]
     Indication: Product used for unknown indication
     Dosage: CRE 0.1%
  27. CELECOXIB CAP 100MG [Concomitant]
     Indication: Product used for unknown indication
     Route: 048
  28. CELECOXIB [Concomitant]
     Active Substance: CELECOXIB
     Indication: Product used for unknown indication
     Dosage: CAP
  29. ONDANSETRON TAB 4MG ODT [Concomitant]
     Indication: Product used for unknown indication

REACTIONS (4)
  - Rheumatoid arthritis [Recovering/Resolving]
  - Loss of personal independence in daily activities [Recovering/Resolving]
  - Pain [Recovering/Resolving]
  - Cystitis [Unknown]

NARRATIVE: CASE EVENT DATE: 20220101
